FAERS Safety Report 5556909-9 (Version None)
Quarter: 2007Q4

REPORT INFORMATION
  Report Type: 
  Country: None (occurrence: None)
  Receive Date: 20071214
  Receipt Date: 20071212
  Transmission Date: 20080405
  Serious: Yes (Life-Threatening, Hospitalization)
  Sender: FDA-Public Use
  Company Number: PHBS2007ES20809

PATIENT
  Age: 61 Year
  Sex: Male

DRUGS (1)
  1. VOLTAREN [Suspect]
     Indication: GOUT
     Dosage: 75 MG/DAY
     Route: 030
     Dates: start: 20070814

REACTIONS (3)
  - ANAPHYLACTIC SHOCK [None]
  - HYPOTENSION [None]
  - SYNCOPE VASOVAGAL [None]
